FAERS Safety Report 4798288-0 (Version None)
Quarter: 2005Q4

REPORT INFORMATION
  Report Type: 
  Country: None (occurrence: None)
  Receive Date: 20051006
  Receipt Date: 20051006
  Transmission Date: 20060501
  Serious: Yes (Life-Threatening, Hospitalization)
  Sender: FDA-Public Use
  Company Number: None

PATIENT
  Age: 40 Year
  Sex: Female
  Weight: 56 kg

DRUGS (3)
  1. MEDROXYPROGESTERONE [Suspect]
     Indication: CONTRACEPTION
     Dosage: 150 MG/ML  SUSPENSION
  2. IRON [Concomitant]
  3. M.V.I. [Concomitant]

REACTIONS (2)
  - DEEP VEIN THROMBOSIS [None]
  - HYPOAESTHESIA [None]
